FAERS Safety Report 11415231 (Version 4)
Quarter: 2016Q1

REPORT INFORMATION
  Report Type: Spontaneous
  Country: GB (occurrence: GB)
  Receive Date: 20150825
  Receipt Date: 20160217
  Transmission Date: 20160525
  Serious: Yes (Death, Hospitalization)
  Sender: FDA-Public Use
  Company Number: GB-TEVA-586916ACC

PATIENT
  Age: 65 Year
  Sex: Male
  Weight: 99 kg

DRUGS (6)
  1. LEFLUNOMIDE. [Suspect]
     Active Substance: LEFLUNOMIDE
     Dosage: ADMINISTERED FOR ABOUT 2 MONTHS.
  2. FULTIUM-D3 [Concomitant]
     Dosage: 1 DOSAGE FORMS DAILY;
     Dates: start: 20141117, end: 20150519
  3. FOLIC ACID. [Concomitant]
     Active Substance: FOLIC ACID
     Dates: start: 20141117, end: 20150519
  4. HYDROXYCHLOROQUINE SULFATE. [Concomitant]
     Active Substance: HYDROXYCHLOROQUINE SULFATE
     Dosage: 2 DOSAGE FORMS DAILY;
     Dates: start: 20141117, end: 20150519
  5. METHOTREXATE [Suspect]
     Active Substance: METHOTREXATE
     Dosage: STOPPED FOR A COUPLE OF MONTHS. RESTARTED IN COMBINATION WITH LEFLUNOMIDE.
     Route: 030
     Dates: start: 2010
  6. LEVOTHYROXINE. [Concomitant]
     Active Substance: LEVOTHYROXINE
     Dosage: 1 DOSAGE FORMS DAILY;
     Dates: start: 20141117, end: 20150519

REACTIONS (2)
  - Pulmonary fibrosis [Fatal]
  - Pneumonitis [Fatal]

NARRATIVE: CASE EVENT DATE: 20150421
